FAERS Safety Report 7597890-0 (Version None)
Quarter: 2011Q3

REPORT INFORMATION
  Report Type: 
  Country: None (occurrence: None)
  Receive Date: 20110708
  Receipt Date: 20110617
  Transmission Date: 20111222
  Serious: No
  Sender: FDA-Public Use
  Company Number: US-B.I. PHARMACEUTICALS,INC./RIDGEFIELD-2011-BP-15807BP

PATIENT
  Age: 55 Year
  Sex: Male

DRUGS (1)
  1. PRADAXA [Suspect]
     Indication: ATRIAL FIBRILLATION
     Dosage: 300 MG
     Route: 048
     Dates: start: 20110401

REACTIONS (5)
  - PARAESTHESIA [None]
  - TOOTHACHE [None]
  - ABNORMAL DREAMS [None]
  - VISION BLURRED [None]
  - ABDOMINAL DISTENSION [None]
